FAERS Safety Report 25539482 (Version 1)
Quarter: 2025Q3

REPORT INFORMATION
  Report Type: Spontaneous
  Country: CA (occurrence: CA)
  Receive Date: 20250710
  Receipt Date: 20250710
  Transmission Date: 20251020
  Serious: Yes (Hospitalization)
  Sender: GE HEALTHCARE
  Company Number: CA-GE HEALTHCARE-2025CSU009065

PATIENT
  Age: 77 Year
  Sex: Female

DRUGS (1)
  1. OMNIPAQUE [Suspect]
     Active Substance: IOHEXOL
     Indication: Computerised tomogram
     Route: 065

REACTIONS (6)
  - Feeling abnormal [Unknown]
  - Loss of consciousness [Unknown]
  - Hypotension [Unknown]
  - Heart rate decreased [Unknown]
  - Paraesthesia oral [Unknown]
  - Feeling hot [Unknown]
